FAERS Safety Report 6416790-2 (Version None)
Quarter: 2009Q4

REPORT INFORMATION
  Report Type: 
  Country: None (occurrence: None)
  Receive Date: 20091022
  Receipt Date: 20091014
  Transmission Date: 20100525
  Serious: Yes (Other)
  Sender: FDA-Public Use
  Company Number: OPER20090184

PATIENT
  Age: 23 Year
  Sex: Male

DRUGS (3)
  1. OPANA ER [Suspect]
     Indication: OFF LABEL USE
     Dosage: 20 MG, ORAL
     Route: 048
  2. UNAMED OPIATES [Concomitant]
  3. STREET DRUGS [Concomitant]

REACTIONS (5)
  - DRUG ABUSE [None]
  - DRUG DIVERSION [None]
  - EUPHORIC MOOD [None]
  - FEELING ABNORMAL [None]
  - INCORRECT ROUTE OF DRUG ADMINISTRATION [None]
